FAERS Safety Report 7540238-8 (Version None)
Quarter: 2011Q2

REPORT INFORMATION
  Report Type: 
  Country: None (occurrence: None)
  Receive Date: 20110610
  Receipt Date: 20110603
  Transmission Date: 20111010
  Serious: Yes (Death, Life-Threatening, Hospitalization)
  Sender: FDA-Public Use
  Company Number: JP-CEPHALON-2011000275

PATIENT
  Sex: Female

DRUGS (26)
  1. PREGABALIN [Concomitant]
     Dates: end: 20101221
  2. FLUNITRAZEPAM [Concomitant]
     Dates: end: 20101221
  3. LIDOCAINE [Concomitant]
     Dates: start: 20101224, end: 20110108
  4. CHLORPHENIRAMINE MALEATE [Concomitant]
     Dates: start: 20101221, end: 20110109
  5. MAGNESIUM OXIDE [Concomitant]
     Dates: end: 20101221
  6. GRANISETRON HCL [Concomitant]
     Dates: start: 20101216, end: 20101217
  7. FLUCONAZOLE [Concomitant]
     Dates: end: 20101221
  8. LANSOPRAZOLE [Concomitant]
     Dates: end: 20101221
  9. GABAPENTIN [Concomitant]
     Dates: end: 20101221
  10. LEVOFLOXACIN [Concomitant]
     Dates: end: 20101218
  11. MIDAZOLAM HCL [Concomitant]
     Dates: start: 20101225
  12. LOXOPROFEN SODIUM [Concomitant]
     Dates: end: 20101221
  13. BROTIZOLAM [Concomitant]
     Dates: end: 20101221
  14. BENDAMUSTINE HCL [Suspect]
     Indication: B-CELL LYMPHOMA
     Route: 042
     Dates: start: 20101216, end: 20101217
  15. MORPHINE HCL ELIXIR [Concomitant]
  16. SULFAMETHOXAZOLE AND TRIMETHOPRIM [Concomitant]
     Dates: end: 20101221
  17. HALOPERIDOL [Concomitant]
     Dates: start: 20101224, end: 20101224
  18. DOPAMINE HYDROCHLORIDE [Concomitant]
     Dates: start: 20110110
  19. THIAMINE DISULFIDE [Concomitant]
     Dates: start: 20101225, end: 20101229
  20. SODIUM BICARBONATE [Concomitant]
     Dates: start: 20101216, end: 20101217
  21. SENNOSIDE [Concomitant]
     Dates: end: 20101221
  22. ALBUMIN (HUMAN) [Concomitant]
     Dates: start: 20101220, end: 20101231
  23. PROCHLORPERAZINE MALEATE [Concomitant]
     Dates: end: 20101221
  24. SODIUM GUALENATE [Concomitant]
     Dates: start: 20101216, end: 20101216
  25. MORPHINE HCL ELIXIR [Concomitant]
     Dates: start: 20101222, end: 20101222
  26. FILGRASTIM [Concomitant]
     Dates: end: 20101216

REACTIONS (11)
  - URINE OUTPUT DECREASED [None]
  - GENERALISED OEDEMA [None]
  - BLOOD UREA INCREASED [None]
  - PNEUMONIA ASPIRATION [None]
  - WHITE BLOOD CELL COUNT DECREASED [None]
  - BLOOD LACTATE DEHYDROGENASE INCREASED [None]
  - HAEMOGLOBIN DECREASED [None]
  - NON-HODGKIN'S LYMPHOMA [None]
  - PLATELET COUNT DECREASED [None]
  - LYMPHOCYTE COUNT DECREASED [None]
  - C-REACTIVE PROTEIN INCREASED [None]
